FAERS Safety Report 23063145 (Version 2)
Quarter: 2023Q4

REPORT INFORMATION
  Report Type: Other
  Country: EG (occurrence: EG)
  Receive Date: 20231013
  Receipt Date: 20231020
  Transmission Date: 20240109
  Serious: Yes (Other)
  Sender: FDA-Public Use
  Company Number: EG-002147023-NVSC2023EG213594

PATIENT
  Age: 83 Year
  Sex: Female

DRUGS (4)
  1. LUCENTIS [Suspect]
     Active Substance: RANIBIZUMAB
     Indication: Age-related macular degeneration
     Dosage: UNK, STARTED SINCE 5 YEARS AGO IN RIGHT EYE + SINCE ONE YEAR AND HALF IN LEFT EYE AND STOPPED ON SIN
     Route: 050
     Dates: start: 2018
  2. LUCENTIS [Suspect]
     Active Substance: RANIBIZUMAB
     Dosage: UNK, (LEFT EYE)
     Route: 050
     Dates: start: 20231002
  3. NEUROTON [CYANOCOBALAMIN;FOLIC ACID;PYRIDOXINE HYDROCHLORIDE;RIBOFLAVI [Concomitant]
     Indication: Hypovitaminosis
     Dosage: 1 DOSAGE FORM, QD, IN MORNING,STARTED SINCE 5 YEARS AGO
  4. OMEGA-3 ACIDS [Concomitant]
     Active Substance: OMEGA-3 FATTY ACIDS
     Indication: Hypovitaminosis
     Dosage: 1 DOSAGE FORM, QD, AFTER LUNCH, STARTED SINCE 5 YEARS AGO

REACTIONS (3)
  - Macular oedema [Not Recovered/Not Resolved]
  - Blindness unilateral [Not Recovered/Not Resolved]
  - Eye pain [Recovering/Resolving]

NARRATIVE: CASE EVENT DATE: 20231002
